FAERS Safety Report 10353195 (Version 1)
Quarter: 2014Q3

REPORT INFORMATION
  Report Type: Spontaneous
  Country: HU (occurrence: HU)
  Receive Date: 20140730
  Receipt Date: 20140730
  Transmission Date: 20150326
  Serious: Yes (Other)
  Sender: FDA-Public Use
  Company Number: PHHY2014HU093097

PATIENT
  Age: 71 Year
  Sex: Male

DRUGS (3)
  1. SANDIMMUN NEORAL / OL [Suspect]
     Active Substance: CYCLOSPORINE
     Indication: MYASTHENIA GRAVIS
     Dosage: 100 MG, BID
     Dates: start: 20130831
  2. MEDROL [Concomitant]
     Active Substance: METHYLPREDNISOLONE
     Indication: NERVOUS SYSTEM DISORDER
     Dosage: 4 MG, ON EVERY SECOND DAY
  3. SANDIMMUN NEORAL / OL [Suspect]
     Active Substance: CYCLOSPORINE
     Dosage: 100 MG, DAILY

REACTIONS (2)
  - Renal impairment [Recovering/Resolving]
  - Off label use [Recovered/Resolved]

NARRATIVE: CASE EVENT DATE: 20130831
